FAERS Safety Report 14378027 (Version 4)
Quarter: 2018Q1

REPORT INFORMATION
  Report Type: Spontaneous
  Country: GB (occurrence: GB)
  Receive Date: 20180111
  Receipt Date: 20180124
  Transmission Date: 20180509
  Serious: Yes (Other)
  Sender: FDA-Public Use
  Company Number: GB-BIOMARINAP-GB-2017-116666

PATIENT
  Age: 5 Year
  Sex: Male

DRUGS (1)
  1. ALDURAZYME [Suspect]
     Active Substance: LARONIDASE
     Indication: PRODUCT USED FOR UNKNOWN INDICATION
     Dosage: 2000 UNITS, QW
     Route: 041

REACTIONS (6)
  - Cough [Unknown]
  - Pain in extremity [Unknown]
  - Eye contusion [Unknown]
  - Arthralgia [Unknown]
  - Neck surgery [Recovering/Resolving]
  - Headache [Recovered/Resolved]
